FAERS Safety Report 8290220-0 (Version None)
Quarter: 2012Q2

REPORT INFORMATION
  Report Type: 
  Country: None (occurrence: None)
  Receive Date: 20120417
  Receipt Date: 20100817
  Transmission Date: 20120825
  Serious: Yes (Hospitalization)
  Sender: FDA-Public Use
  Company Number: US-BAYER-200942943NA

PATIENT
  Age: 44 Year
  Sex: Female
  Weight: 48 kg

DRUGS (14)
  1. YASMIN [Suspect]
     Indication: PREMENSTRUAL SYNDROME
     Route: 048
     Dates: start: 20051001, end: 20090301
  2. YASMIN [Suspect]
     Indication: MIGRAINE
     Dosage: UNK
     Dates: start: 20051001, end: 20080701
  3. ZOMIG-ZMT [Concomitant]
  4. PREDNISONE [Concomitant]
  5. BALSALAZINE DISODIUM [Concomitant]
     Indication: COLITIS ULCERATIVE
     Dosage: UNK
     Dates: start: 20081201
  6. PROZAC [Concomitant]
     Indication: MIGRAINE
     Dosage: UNK
     Dates: start: 20050101, end: 20090101
  7. CLARITIN-D [Concomitant]
  8. AZITHROMYCIN [Concomitant]
  9. FERROUS SULFATE TAB [Concomitant]
     Indication: ANAEMIA
  10. SINGULAIR [Concomitant]
  11. REMICADE [Concomitant]
  12. LORATADINE [Concomitant]
     Dosage: UNK
  13. CORTIFOAM [Concomitant]
  14. XANAX [Concomitant]
     Indication: ANXIETY
     Dosage: UNK
     Dates: start: 20090101, end: 20100101

REACTIONS (3)
  - PULMONARY EMBOLISM [None]
  - INJURY [None]
  - DEEP VEIN THROMBOSIS [None]
